FAERS Safety Report 24342073 (Version 1)
Quarter: 2024Q3

REPORT INFORMATION
  Report Type: Spontaneous
  Country: US (occurrence: US)
  Receive Date: 20240920
  Receipt Date: 20240920
  Transmission Date: 20241016
  Serious: No
  Sender: ALKEM
  Company Number: US-ALKEM LABORATORIES LIMITED-US-ALKEM-2024-19385

PATIENT
  Sex: Male

DRUGS (5)
  1. LACOSAMIDE [Suspect]
     Active Substance: LACOSAMIDE
     Indication: Neonatal seizure
     Dosage: 10 MILLIGRAM/KILOGRAM, QD (MAINTENANCE DOSE)
     Route: 065
  2. LACOSAMIDE [Suspect]
     Active Substance: LACOSAMIDE
     Dosage: 10 MILLIGRAM/KILOGRAM (LOADING DOSE)
     Route: 065
  3. LACOSAMIDE [Suspect]
     Active Substance: LACOSAMIDE
     Dosage: 5 MILLIGRAM/KILOGRAM (INITIAL DOSE) (MAINTENANCE DOSE)
     Route: 065
  4. LACOSAMIDE [Suspect]
     Active Substance: LACOSAMIDE
     Dosage: 15 MILLIGRAM/KILOGRAM (LATEST DOSE) (MAINTENANCE DOSE)
     Route: 065
  5. LEVETIRACETAM [Suspect]
     Active Substance: LEVETIRACETAM
     Indication: Neonatal seizure
     Dosage: 60 MILLIGRAM/KILOGRAM, QD (MAINTENANCE AND LOADING DOSE)
     Route: 065

REACTIONS (2)
  - Off label use [Unknown]
  - Treatment failure [Unknown]
